FAERS Safety Report 8356194 (Version 2)
Quarter: 2013Q2

REPORT INFORMATION
  Report Type: Spontaneous
  Country: JP (occurrence: JP)
  Receive Date: 20120126
  Receipt Date: 20130410
  Transmission Date: 20140414
  Serious: Yes (Death, Hospitalization)
  Sender: FDA-Public Use
  Company Number: JP-ROCHE-1001070

PATIENT
  Age: 36 Year
  Sex: Male
  Weight: 76 kg

DRUGS (7)
  1. AVASTIN [Suspect]
     Indication: LUNG ADENOCARCINOMA METASTATIC
     Route: 041
     Dates: start: 20110712, end: 20110913
  2. CISPLATIN [Concomitant]
     Indication: LUNG ADENOCARCINOMA METASTATIC
     Route: 041
     Dates: start: 20110506, end: 20110913
  3. ALIMTA [Concomitant]
     Indication: LUNG ADENOCARCINOMA METASTATIC
     Route: 041
     Dates: start: 20110506, end: 20110913
  4. PANVITAN [Concomitant]
     Indication: PROPHYLAXIS
     Route: 048
     Dates: start: 20110426, end: 20110923
  5. MS CONTIN [Concomitant]
     Indication: PAIN
     Route: 048
     Dates: start: 20110412
  6. ADRENAL HORMONE PREPARATION (UNK INGREDIENTS) [Concomitant]
     Dosage: DOSAGE IS UNCERTAIN.
     Route: 065
  7. LENDORMIN [Concomitant]
     Indication: INSOMNIA
     Route: 048
     Dates: start: 20110822

REACTIONS (2)
  - Rectal perforation [Recovered/Resolved]
  - Disease progression [Fatal]
